FAERS Safety Report 10274345 (Version 3)
Quarter: 2015Q2

REPORT INFORMATION
  Report Type: Spontaneous
  Country: US (occurrence: US)
  Receive Date: 20140702
  Receipt Date: 20150626
  Transmission Date: 20150821
  Serious: Yes (Other)
  Sender: FDA-Public Use
  Company Number: US-UCBSA-119041

PATIENT
  Age: 46 Year
  Sex: Male
  Weight: 64.9 kg

DRUGS (10)
  1. ERYTHROMYCIN. [Concomitant]
     Active Substance: ERYTHROMYCIN
     Route: 042
  2. VIMPAT [Suspect]
     Active Substance: LACOSAMIDE
     Dosage: 150 MG, 2X/DAY (BID)
     Route: 048
  3. DIAZEPAM. [Concomitant]
     Active Substance: DIAZEPAM
     Dosage: 1.3 YEARS AGO
  4. PHENOBARBITAL. [Suspect]
     Active Substance: PHENOBARBITAL
     Dosage: 32.4 MG, 3X/DAY (TID)
     Dates: start: 20140422
  5. VIMPAT [Suspect]
     Active Substance: LACOSAMIDE
     Indication: CONVULSION PROPHYLAXIS
     Dosage: LOWER DOSE; DOSE UNKNOWN
     Route: 048
  6. ZANAFLEX [Concomitant]
     Active Substance: TIZANIDINE HYDROCHLORIDE
     Dosage: UNK, AS NEEDED (PRN)
     Route: 048
  7. ASPIRIN. [Concomitant]
     Active Substance: ASPIRIN
     Indication: CARDIOVASCULAR EVENT PROPHYLAXIS
     Dosage: 81 MG, ONCE DAILY (QD)
     Route: 048
  8. BUSPAR [Concomitant]
     Active Substance: BUSPIRONE HYDROCHLORIDE
     Dosage: UNK, AS NEEDED (PRN)
  9. PHENOBARBITAL. [Suspect]
     Active Substance: PHENOBARBITAL
     Dosage: 16.2 MG, 2X/DAY (BID)
  10. CELEXA [Concomitant]
     Active Substance: CITALOPRAM HYDROBROMIDE
     Indication: ANXIETY
     Dosage: 40 MG, ONCE DAILY (QD)
     Route: 048

REACTIONS (6)
  - Skin abrasion [Recovering/Resolving]
  - Contusion [Recovering/Resolving]
  - Head injury [Recovered/Resolved]
  - Seizure [Recovered/Resolved]
  - Fall [Recovered/Resolved]
  - Drug ineffective [Unknown]

NARRATIVE: CASE EVENT DATE: 20140417
